FAERS Safety Report 8341600-6 (Version None)
Quarter: 2012Q2

REPORT INFORMATION
  Report Type: 
  Country: None (occurrence: None)
  Receive Date: 20120507
  Receipt Date: 20120504
  Transmission Date: 20120825
  Serious: No
  Sender: FDA-Public Use
  Company Number: US-PFIZER INC-2012110362

PATIENT
  Sex: Female
  Weight: 81.633 kg

DRUGS (5)
  1. ABILIFY [Concomitant]
     Dosage: 20 MG, UNK
  2. LEVOCETIRIZINE [Concomitant]
     Indication: HYPERSENSITIVITY
     Dosage: UNK
  3. BACLOFEN [Concomitant]
     Dosage: 10 MG, 1X/DAY
  4. CELEBREX [Concomitant]
     Dosage: 200 MG, 1X/DAY
  5. CHANTIX [Suspect]
     Indication: SMOKING CESSATION THERAPY
     Dosage: 0.5 MG, 1X/DAY
     Route: 048
     Dates: start: 20120226, end: 20120501

REACTIONS (1)
  - DEPRESSED MOOD [None]
